FAERS Safety Report 21664195 (Version 1)
Quarter: 2022Q4

REPORT INFORMATION
  Report Type: Spontaneous
  Country: US (occurrence: US)
  Receive Date: 20221130
  Receipt Date: 20221130
  Transmission Date: 20230113
  Serious: No
  Sender: FDA-Public Use
  Company Number: US-Millicent Holdings Ltd.-MILL20220371

PATIENT
  Age: 69 Year
  Sex: Female

DRUGS (1)
  1. INTRAROSA [Suspect]
     Active Substance: PRASTERONE
     Indication: Vulvovaginal dryness
     Dosage: 6.5 MG, UNKNOWN
     Route: 067

REACTIONS (2)
  - Application site discharge [Unknown]
  - Off label use [Unknown]

NARRATIVE: CASE EVENT DATE: 20221001
